FAERS Safety Report 5845702-5 (Version None)
Quarter: 2008Q3

REPORT INFORMATION
  Report Type: 
  Country: None (occurrence: None)
  Receive Date: 20080814
  Receipt Date: 20080806
  Transmission Date: 20090109
  Serious: Yes (Other)
  Sender: FDA-Public Use
  Company Number: PHHY2008DE17506

PATIENT
  Sex: Female

DRUGS (1)
  1. ACLASTA [Suspect]
     Dosage: 5 MG
     Route: 042
     Dates: start: 20080109, end: 20080109

REACTIONS (5)
  - DRY MOUTH [None]
  - HYPOAESTHESIA FACIAL [None]
  - MYALGIA [None]
  - PYREXIA [None]
  - VISUAL IMPAIRMENT [None]
